FAERS Safety Report 5019848-8 (Version None)
Quarter: 2006Q2

REPORT INFORMATION
  Report Type: 
  Country: None (occurrence: None)
  Receive Date: 20060601
  Receipt Date: 20060519
  Transmission Date: 20061013
  Serious: Yes (Hospitalization, Other)
  Sender: FDA-Public Use
  Company Number: 2006066948

PATIENT
  Age: 51 Year
  Sex: Female
  Weight: 60 kg

DRUGS (5)
  1. CELEBREX [Suspect]
     Indication: PROCEDURAL PAIN
     Dosage: 200 MG ORAL
     Route: 048
     Dates: start: 20060331, end: 20060331
  2. DULCOLAX [Suspect]
     Indication: POSTOPERATIVE CONSTIPATION
     Dates: start: 20060401, end: 20060401
  3. LAXOBERAL (SODIUM PICOSULFATE) [Suspect]
     Indication: POSTOPERATIVE CONSTIPATION
     Dates: start: 20060401, end: 20060401
  4. VOLTAREN [Concomitant]
  5. MEDROXYPROGESTERONE [Concomitant]

REACTIONS (14)
  - ASTHENIA [None]
  - CONSTIPATION [None]
  - DIARRHOEA [None]
  - DYSPNOEA EXERTIONAL [None]
  - HYPERVENTILATION [None]
  - HYPOKALAEMIA [None]
  - PLATELET COUNT DECREASED [None]
  - PLEURAL EFFUSION [None]
  - PNEUMONITIS [None]
  - PROTHROMBIN TIME SHORTENED [None]
  - PULMONARY EMBOLISM [None]
  - RESPIRATORY FAILURE [None]
  - STOMATITIS [None]
  - URINARY TRACT INFECTION [None]
